FAERS Safety Report 21139954 (Version 2)
Quarter: 2022Q3

REPORT INFORMATION
  Report Type: Spontaneous
  Country: FR (occurrence: FR)
  Receive Date: 20220728
  Receipt Date: 20220820
  Transmission Date: 20221026
  Serious: Yes (Hospitalization)
  Sender: FDA-Public Use
  Company Number: None

PATIENT
  Age: 67 Year
  Sex: Male
  Weight: 62 kg

DRUGS (10)
  1. CLOZAPINE [Interacting]
     Active Substance: CLOZAPINE
     Indication: Psychotic disorder
     Dosage: UNIT DOSE : 200 MG , FREQUENCY TIME :1 DAY
     Route: 065
     Dates: start: 20210416
  2. PAROXETINE [Interacting]
     Active Substance: PAROXETINE
     Indication: Depression
     Dosage: UNIT DOSE :40 MG   , FREQUENCY TIME : 1 DAY
     Route: 065
     Dates: start: 20210222
  3. FERROUS FUMARATE [Suspect]
     Active Substance: FERROUS FUMARATE
     Indication: Iron deficiency
     Dosage: FORM STRENGTH : 66 MG ,UNIT DOSE : 132 MG  , FREQUENCY TIME :1 DAY
     Route: 065
     Dates: start: 20210415
  4. TROPATEPINE HYDROCHLORIDE [Interacting]
     Active Substance: TROPATEPINE HYDROCHLORIDE
     Indication: Psychotic disorder
     Dosage: FORM STRENGTH : 10MG ,UNIT DOSE : 20 MG , FREQUENCY TIME : 1DAY
     Dates: start: 20210222
  5. OXAZEPAM [Interacting]
     Active Substance: OXAZEPAM
     Indication: Anxiety
     Dosage: UNIT DOSE : 60 MG , FREQUENCY TIME : 1 DAY
     Route: 065
     Dates: start: 20210311
  6. VALPROMIDE [Interacting]
     Active Substance: VALPROMIDE
     Indication: Bipolar disorder
     Dosage: FORM STRENGTH :300 MG, GASTRO-RESISTANT FILM-COATED TABLET ,UNIT DOSE :600 MG  , FREQUENCY TIME : 1
     Dates: start: 20210413
  7. ALFUZOSIN HYDROCHLORIDE [Concomitant]
     Active Substance: ALFUZOSIN HYDROCHLORIDE
     Indication: Bladder dilatation
     Dosage: ALFUZOSINE (CHLORHYDRATE D^) ,UNIT DOSE :10 MG  , FREQUENCY TIME : 1 DAY
     Dates: start: 20210413
  8. POLYETHYLENE GLYCOLS [Concomitant]
     Active Substance: POLYETHYLENE GLYCOLS
     Indication: Constipation
     Dosage: MACROGOL (STEARATE DE) , UNIT DOSE :4 DF  , FREQUENCY TIME :1 DAY
     Dates: start: 20210416
  9. ENOXAPARIN SODIUM [Concomitant]
     Active Substance: ENOXAPARIN SODIUM
     Indication: Thrombosis prophylaxis
     Dosage: ENOXAPARINE SODIQUE ((MAMMIFERE/PORC/MUQUEUSE INTESTINALE)) , UNIT DOSE :4000 IU  , FREQUENCY TIME :
     Dates: start: 20210330
  10. MINERAL OIL [Concomitant]
     Active Substance: MINERAL OIL
     Indication: Constipation
     Dosage: UNIT DOSE : 2  DF , FREQUENCY TIME :1 DAY
     Dates: start: 20210420

REACTIONS (2)
  - Small intestinal obstruction [Recovered/Resolved]
  - Drug interaction [Unknown]

NARRATIVE: CASE EVENT DATE: 20210421
